FAERS Safety Report 13090802 (Version 2)
Quarter: 2017Q1

REPORT INFORMATION
  Report Type: Spontaneous
  Country: PL (occurrence: PL)
  Receive Date: 20170106
  Receipt Date: 20170126
  Transmission Date: 20170428
  Serious: Yes (Other)
  Sender: FDA-Public Use
  Company Number: PL-ROCHE-1875727

PATIENT
  Age: 36 Year
  Sex: Female
  Weight: 52 kg

DRUGS (5)
  1. METOCLOPRAMIDE. [Concomitant]
     Active Substance: METOCLOPRAMIDE
  2. FURAGINUM [Concomitant]
     Active Substance: FURAZIDINE
     Indication: URINARY TRACT INFECTION
  3. CONTROLOC [Concomitant]
     Active Substance: PANTOPRAZOLE SODIUM
  4. PABI-DEXAMETHASON [Concomitant]
  5. ZELBORAF [Suspect]
     Active Substance: VEMURAFENIB
     Indication: METASTATIC MALIGNANT MELANOMA
     Dosage: 960 X 2
     Route: 065
     Dates: start: 20160511, end: 20161220

REACTIONS (6)
  - Metastases to spinal cord [Unknown]
  - Metastases to central nervous system [Unknown]
  - Paralysis [Unknown]
  - Procedural vomiting [Unknown]
  - Vision blurred [Unknown]
  - Pain in extremity [Unknown]

NARRATIVE: CASE EVENT DATE: 20170102
